FAERS Safety Report 23625715 (Version 1)
Quarter: 2024Q1

REPORT INFORMATION
  Report Type: Spontaneous
  Country: IT (occurrence: IT)
  Receive Date: 20240313
  Receipt Date: 20240313
  Transmission Date: 20240410
  Serious: No
  Sender: FDA-Public Use
  Company Number: IT-SANDOZ-SDZ2023IT022782

PATIENT
  Sex: Male

DRUGS (1)
  1. OMNITROPE [Suspect]
     Active Substance: SOMATROPIN
     Indication: Product used for unknown indication
     Dosage: UNKNOWN
     Route: 065
     Dates: start: 20221128

REACTIONS (4)
  - Drug delivery system malfunction [Unknown]
  - Device issue [Unknown]
  - Incorrect dose administered [Unknown]
  - Product administration interrupted [Unknown]
